FAERS Safety Report 19451448 (Version 1)
Quarter: 2021Q2

REPORT INFORMATION
  Report Type: Spontaneous
  Country: US (occurrence: US)
  Receive Date: 20210623
  Receipt Date: 20210623
  Transmission Date: 20210717
  Serious: No
  Sender: FDA-Public Use
  Company Number: ALC2020US008461

PATIENT
  Sex: Female

DRUGS (1)
  1. PATADAY [Suspect]
     Active Substance: OLOPATADINE HYDROCHLORIDE
     Indication: PRODUCT USED FOR UNKNOWN INDICATION
     Route: 065

REACTIONS (8)
  - Product container seal issue [Recovered/Resolved]
  - Packaging design issue [Recovered/Resolved]
  - Eye pruritus [Recovered/Resolved]
  - Eye pain [Recovered/Resolved]
  - Feeling abnormal [Recovered/Resolved]
  - Product preparation issue [Recovered/Resolved]
  - Hypersensitivity [Recovered/Resolved]
  - Product container issue [Recovered/Resolved]

NARRATIVE: CASE EVENT DATE: 20201020
